FAERS Safety Report 7729343-0 (Version None)
Quarter: 2011Q3

REPORT INFORMATION
  Report Type: 
  Country: None (occurrence: None)
  Receive Date: 20110906
  Receipt Date: 20110830
  Transmission Date: 20111222
  Serious: Yes (Life-Threatening, Hospitalization, Other)
  Sender: FDA-Public Use
  Company Number: US-ASTELLAS-2011US003878

PATIENT
  Sex: Male
  Weight: 84 kg

DRUGS (9)
  1. PROBIOTIC [Concomitant]
     Indication: PRODUCT USED FOR UNKNOWN INDICATION
     Dosage: UNK
     Route: 065
  2. NYSTATIN [Concomitant]
     Indication: PRODUCT USED FOR UNKNOWN INDICATION
     Dosage: UNK
     Route: 048
  3. CEFTAZIDIME [Concomitant]
     Indication: PYREXIA
     Dosage: UNK
     Route: 065
     Dates: start: 20110615
  4. FLAGYL [Concomitant]
     Indication: CLOSTRIDIUM TEST POSITIVE
     Dosage: UNK
     Route: 065
  5. AMBISOME [Suspect]
     Indication: FUNGAL INFECTION
     Dosage: 3 MG/KG, UNKNOWN/D
     Route: 042
     Dates: start: 20110707, end: 20110709
  6. CHEMOTHERAPEUTICS NOS [Concomitant]
     Indication: ACUTE MYELOID LEUKAEMIA
     Dosage: UNK
     Route: 065
     Dates: start: 20110629
  7. MULTI-VITAMIN [Concomitant]
     Indication: PRODUCT USED FOR UNKNOWN INDICATION
     Dosage: UNK
     Route: 065
  8. CEFEPIME [Concomitant]
     Indication: PYREXIA
     Dosage: UNK
     Route: 065
     Dates: start: 20110601
  9. VANCOMYCIN [Concomitant]
     Indication: CLOSTRIDIUM TEST POSITIVE
     Dosage: UNK
     Route: 065
     Dates: start: 20110701

REACTIONS (10)
  - ATELECTASIS [None]
  - FUNGAL SKIN INFECTION [None]
  - SEPTIC SHOCK [None]
  - COLITIS [None]
  - HYPOTENSION [None]
  - MENTAL STATUS CHANGES [None]
  - RENAL FAILURE ACUTE [None]
  - GASTROINTESTINAL HAEMORRHAGE [None]
  - CHILLS [None]
  - MEDICAL DEVICE COMPLICATION [None]
